FAERS Safety Report 21365916 (Version 4)
Quarter: 2024Q2

REPORT INFORMATION
  Report Type: Spontaneous
  Country: US (occurrence: US)
  Receive Date: 20220922
  Receipt Date: 20240624
  Transmission Date: 20240715
  Serious: Yes (Other)
  Sender: FDA-Public Use
  Company Number: US-TEVA-2022-US-2076620

PATIENT
  Age: 62 Year
  Sex: Male
  Weight: 136.07 kg

DRUGS (18)
  1. VALSARTAN [Suspect]
     Active Substance: VALSARTAN
     Indication: Hypertension
     Dosage: DOSAGE TEXT: 80MG
     Route: 065
     Dates: start: 20150306, end: 20151120
  2. VALSARTAN [Suspect]
     Active Substance: VALSARTAN
     Indication: Hypertension
     Dosage: DOSAGE TEXT: 160 MG
     Route: 048
     Dates: start: 20160713, end: 20180125
  3. VALSARTAN [Suspect]
     Active Substance: VALSARTAN
     Indication: Hypertension
     Dosage: DOSAGE TEXT: 80 MG
     Route: 048
     Dates: start: 20180301, end: 20180826
  4. IRBESARTAN [Suspect]
     Active Substance: IRBESARTAN
     Indication: Hypertension
     Dosage: DOSAGE TEXT: 150MG
     Route: 048
     Dates: start: 20181111, end: 20190209
  5. IRBESARTAN [Suspect]
     Active Substance: IRBESARTAN
     Indication: Hypertension
     Dosage: DOSAGE TEXT: 150MG
     Route: 048
     Dates: start: 20190227, end: 20190528
  6. ROSUVASTATIN [Concomitant]
     Active Substance: ROSUVASTATIN
     Indication: Blood cholesterol increased
     Dosage: DOSAGE TEXT: 20MG ONCE A DAY, UNTIL PRESENT
     Route: 048
     Dates: start: 2006
  7. PRAVACHOL [Concomitant]
     Active Substance: PRAVASTATIN SODIUM
     Indication: Blood cholesterol increased
     Dosage: DOSAGE TEXT: 40MG ONCE A DAY
     Route: 048
     Dates: start: 20030615, end: 20030928
  8. HYDROCHLOROTHIAZIDE [Concomitant]
     Active Substance: HYDROCHLOROTHIAZIDE
     Indication: Fluid retention
     Dosage: DOSAGE TEXT: 25MG ONCE A DAY, UNTIL PRESENT
     Route: 048
     Dates: start: 2006
  9. IRBESARTAN [Suspect]
     Active Substance: IRBESARTAN
     Indication: Hypertension
     Dosage: DOSAGE TEXT: 150MG
     Route: 048
     Dates: start: 20190902, end: 20191201
  10. IRBESARTAN [Suspect]
     Active Substance: IRBESARTAN
     Indication: Hypertension
     Dosage: DOSAGE TEXT: 150MG
     Route: 048
     Dates: start: 20201212, end: 20210312
  11. IRBESARTAN [Suspect]
     Active Substance: IRBESARTAN
     Indication: Hypertension
     Dosage: DOSAGE TEXT: 150MG
     Route: 048
     Dates: start: 20200229, end: 20200423
  12. IRBESARTAN [Suspect]
     Active Substance: IRBESARTAN
     Indication: Hypertension
     Dosage: DOSAGE TEXT: 150MG
     Route: 048
     Dates: start: 20200610, end: 20200908
  13. IRBESARTAN [Suspect]
     Active Substance: IRBESARTAN
     Indication: Hypertension
     Dosage: DOSAGE TEXT: 150MG
     Route: 048
     Dates: start: 20210307, end: 20210605
  14. IRBESARTAN [Suspect]
     Active Substance: IRBESARTAN
     Indication: Hypertension
     Dosage: DOSAGE TEXT: 150MG
     Route: 048
     Dates: start: 20180727, end: 20181025
  15. IRBESARTAN [Suspect]
     Active Substance: IRBESARTAN
     Indication: Hypertension
     Dosage: DOSAGE TEXT: 150MG
     Route: 048
     Dates: start: 20200417, end: 20200517
  16. IRBESARTAN [Suspect]
     Active Substance: IRBESARTAN
     Indication: Hypertension
     Dosage: DOSAGE TEXT: 150MG
     Route: 048
     Dates: start: 20211027, end: 20220125
  17. VALSARTAN [Suspect]
     Active Substance: VALSARTAN
     Indication: Hypertension
     Dosage: DOSAGE TEXT: 80 MG
     Route: 065
     Dates: start: 20141115, end: 20150213
  18. VALSARTAN [Suspect]
     Active Substance: VALSARTAN
     Indication: Hypertension
     Dosage: DOSAGE TEXT: 80 MG
     Route: 065
     Dates: start: 20160226, end: 20160526

REACTIONS (1)
  - Colon cancer stage I [Unknown]
